FAERS Safety Report 18666648 (Version 1)
Quarter: 2020Q4

REPORT INFORMATION
  Report Type: Spontaneous
  Country: GB (occurrence: GB)
  Receive Date: 20201227
  Receipt Date: 20201227
  Transmission Date: 20210114
  Serious: Yes (Other)
  Sender: FDA-Public Use
  Company Number: GB-TEVA-2020-GB-1861425

PATIENT
  Age: 26 Year
  Sex: Female
  Weight: 108 kg

DRUGS (4)
  1. CITALOPRAM [Concomitant]
     Active Substance: CITALOPRAM HYDROBROMIDE
     Dosage: UNIT DOSE : 30 MG
     Dates: start: 20200629
  2. SUMATRIPTAN. [Suspect]
     Active Substance: SUMATRIPTAN
     Dosage: AS DIRECTED, A SECOND DOSE MAYBE , UNIT DOSE : 50 MG
     Dates: start: 20201118
  3. LANSOPRAZOLE. [Concomitant]
     Active Substance: LANSOPRAZOLE
     Dosage: 1 DOSAGE FORMS DAILY; EVERY MORNING
     Dates: start: 20200630
  4. PROPRANOLOL [Concomitant]
     Active Substance: PROPRANOLOL HYDROCHLORIDE
     Indication: MIGRAINE
     Dosage: UNIT DOSE : 2 DF
     Dates: start: 20200930

REACTIONS (5)
  - Dizziness [Recovered/Resolved]
  - Somnolence [Unknown]
  - Delirium [Unknown]
  - Confusional state [Recovered/Resolved]
  - Nausea [Recovered/Resolved]

NARRATIVE: CASE EVENT DATE: 20201130
